FAERS Safety Report 19856891 (Version 4)
Quarter: 2021Q4

REPORT INFORMATION
  Report Type: Report from Study
  Country: US (occurrence: US)
  Receive Date: 20210920
  Receipt Date: 20211006
  Transmission Date: 20220303
  Serious: No
  Sender: FDA-Public Use
  Company Number: NVSC2021US212498

PATIENT
  Sex: Female
  Weight: 121.54 kg

DRUGS (4)
  1. TREPROSTINIL [Suspect]
     Active Substance: TREPROSTINIL
     Indication: Pulmonary arterial hypertension
     Dosage: 1 NG, CONT (UNITS: NG/KG/MIN)
     Route: 058
     Dates: start: 20210729
  2. TREPROSTINIL [Suspect]
     Active Substance: TREPROSTINIL
     Dosage: UNK
     Route: 065
  3. SILDENAFIL CITRATE [Concomitant]
     Active Substance: SILDENAFIL CITRATE
     Indication: Product used for unknown indication
     Dosage: UNK
     Route: 065
  4. UPTRAVI [Concomitant]
     Active Substance: SELEXIPAG
     Indication: Product used for unknown indication
     Route: 065

REACTIONS (13)
  - Face oedema [Unknown]
  - Oedema peripheral [Unknown]
  - Photosensitivity reaction [Unknown]
  - Localised oedema [Unknown]
  - Visual impairment [Unknown]
  - Dizziness [Unknown]
  - Cough [Unknown]
  - Drug intolerance [Unknown]
  - Dyspnoea [Unknown]
  - Fatigue [Unknown]
  - Nausea [Unknown]
  - Injection site pain [Unknown]
  - Drug ineffective [Unknown]
